FAERS Safety Report 22222477 (Version 1)
Quarter: 2023Q2

REPORT INFORMATION
  Report Type: Report from Study
  Country: IN (occurrence: IN)
  Receive Date: 20230418
  Receipt Date: 20230418
  Transmission Date: 20230722
  Serious: Yes (Hospitalization)
  Sender: FDA-Public Use
  Company Number: IN-SUN PHARMACEUTICAL INDUSTRIES LTD-2023R1-384734

PATIENT
  Age: 14 Year
  Sex: Male
  Weight: 94.8 kg

DRUGS (3)
  1. TEMOZOLOMIDE [Suspect]
     Active Substance: TEMOZOLOMIDE
     Indication: Ewing^s sarcoma
     Dosage: 75 MILLIGRAM, DAILY DAY 1 TO DAY 5 EVERY 21 DAYS (75 MG/M2)
     Route: 048
     Dates: start: 20230321
  2. IRINOTECAN [Suspect]
     Active Substance: IRINOTECAN
     Indication: Ewing^s sarcoma
     Dosage: UNK 68 MG IN 0.9% SODIUM (500 ML) FOR 90 MINS, 1X/DAY, DAY 1 TO DAY 5 EVERY 21 DAYS (50 MG/M2)
     Route: 042
     Dates: start: 20230321
  3. PALBOCICLIB [Suspect]
     Active Substance: PALBOCICLIB
     Indication: Ewing^s sarcoma
     Dosage: 75 MILLIGRAM, DAILY DAY 1 TO DAY 14 (55 MG/M2),
     Route: 048
     Dates: start: 20230321, end: 20230328

REACTIONS (3)
  - Nausea [Recovering/Resolving]
  - Vomiting [Recovering/Resolving]
  - Diarrhoea [Unknown]

NARRATIVE: CASE EVENT DATE: 20230328
